FAERS Safety Report 9293416 (Version 2)
Quarter: 2013Q3

REPORT INFORMATION
  Report Type: Spontaneous
  Country: US (occurrence: US)
  Receive Date: 20130516
  Receipt Date: 20130820
  Transmission Date: 20140515
  Serious: No
  Sender: FDA-Public Use
  Company Number: US-009507513-1305USA003125

PATIENT
  Sex: Male

DRUGS (1)
  1. DR. SCHOLL^S FREEZE AWAY DUAL ACTION COMMON + PLANTAR WART REMOVER [Suspect]
     Indication: PRODUCT USED FOR UNKNOWN INDICATION
     Dosage: UNK, UNKNOWN
     Route: 061

REACTIONS (2)
  - Underdose [Unknown]
  - Device deployment issue [Unknown]
